FAERS Safety Report 5075547-8 (Version None)
Quarter: 2006Q3

REPORT INFORMATION
  Report Type: 
  Country: None (occurrence: None)
  Receive Date: 20060809
  Receipt Date: 20060614
  Transmission Date: 20061208
  Serious: Yes (Other)
  Sender: FDA-Public Use
  Company Number: US-ROCHE-452045

PATIENT
  Age: 47 Year
  Sex: Male
  Weight: 87.5 kg

DRUGS (7)
  1. PEGASYS [Suspect]
     Dosage: EVERY TUESDAY.
     Route: 058
     Dates: start: 20060509, end: 20060613
  2. PEGASYS [Suspect]
     Route: 058
     Dates: start: 20060710
  3. COPEGUS [Suspect]
     Route: 048
     Dates: start: 20060509, end: 20060613
  4. COPEGUS [Suspect]
     Route: 048
     Dates: start: 20060714
  5. METFORMIN [Concomitant]
     Route: 048
     Dates: start: 20040615
  6. PRINIVIL [Concomitant]
     Indication: HYPERTENSION
     Route: 048
     Dates: start: 20010615
  7. HYDROCHLOROTHIAZIDE [Concomitant]
     Indication: HYPERTENSION
     Route: 048
     Dates: start: 20010615

REACTIONS (11)
  - ANXIETY [None]
  - ASTHENIA [None]
  - CONFUSIONAL STATE [None]
  - CONTUSION [None]
  - DIZZINESS [None]
  - DYSPNOEA [None]
  - GOUT [None]
  - HAEMOLYTIC ANAEMIA [None]
  - HEADACHE [None]
  - IRRITABILITY [None]
  - NAUSEA [None]
